FAERS Safety Report 11692519 (Version 7)
Quarter: 2018Q3

REPORT INFORMATION
  Report Type: Spontaneous
  Country: US (occurrence: US)
  Receive Date: 20151103
  Receipt Date: 20180905
  Transmission Date: 20181010
  Serious: Yes (Hospitalization, Other)
  Sender: FDA-Public Use
  Company Number: US-PFIZER INC-2015370637

PATIENT
  Age: 66 Year
  Sex: Female
  Weight: 54.43 kg

DRUGS (7)
  1. IBRANCE [Suspect]
     Active Substance: PALBOCICLIB
     Indication: BREAST CANCER METASTATIC
     Dosage: 125 MG, CYCLIC (ONE CAPSULE A DAY FOR 3 WEEKS ON AND 1 WEEK OFF)
     Route: 048
     Dates: start: 201509
  2. IBRANCE [Suspect]
     Active Substance: PALBOCICLIB
     Dosage: UNK
     Dates: end: 20170103
  3. CYMBALTA [Suspect]
     Active Substance: DULOXETINE HYDROCHLORIDE
     Indication: DEPRESSION
     Dosage: UNK (30 MG 1?2 X DAILY )
     Dates: start: 201502
  4. IBRANCE [Suspect]
     Active Substance: PALBOCICLIB
     Dosage: 125 MG, CYCLIC, (ONCE DAILY BY MOUTH FOR 21 DAYS OUT OF THE MONTH)
     Route: 048
     Dates: start: 2015
  5. CYMBALTA [Suspect]
     Active Substance: DULOXETINE HYDROCHLORIDE
     Indication: ANXIETY
  6. IBRANCE [Suspect]
     Active Substance: PALBOCICLIB
     Dosage: UNK
  7. XGEVA [Concomitant]
     Active Substance: DENOSUMAB
     Dosage: UNK
     Dates: start: 201502, end: 201610

REACTIONS (8)
  - Constipation [Not Recovered/Not Resolved]
  - Influenza [Recovered/Resolved]
  - Irritable bowel syndrome [Not Recovered/Not Resolved]
  - Loss of consciousness [Unknown]
  - Abdominal distension [Not Recovered/Not Resolved]
  - Neoplasm progression [Unknown]
  - Muscle spasms [Not Recovered/Not Resolved]
  - Diarrhoea [Not Recovered/Not Resolved]

NARRATIVE: CASE EVENT DATE: 2015
